FAERS Safety Report 16084095 (Version 1)
Quarter: 2019Q2

REPORT INFORMATION
  Report Type: Spontaneous
  Country: US (occurrence: US)
  Receive Date: 20190316
  Receipt Date: 20190316
  Transmission Date: 20190711
  Serious: Yes (Other)
  Sender: FDA-Public Use
  Company Number: None

PATIENT
  Age: 18 Year
  Sex: Male

DRUGS (2)
  1. AFINITOR [Suspect]
     Active Substance: EVEROLIMUS
     Indication: BRAIN NEOPLASM MALIGNANT
     Dosage: ?          OTHER FREQUENCY:Q 48HRS ALT W/10MG;?
     Route: 048
     Dates: start: 20190226
  2. AFINITOR [Suspect]
     Active Substance: EVEROLIMUS
     Indication: BRAIN NEOPLASM MALIGNANT
     Dosage: ?          OTHER FREQUENCY:WITH 5MG TABS;?
     Route: 048
     Dates: start: 20190110

REACTIONS (8)
  - Diarrhoea [None]
  - Musculoskeletal disorder [None]
  - Hypophagia [None]
  - Constipation [None]
  - Gait disturbance [None]
  - Fatigue [None]
  - Proctalgia [None]
  - Movement disorder [None]
